FAERS Safety Report 4523523-3 (Version None)
Quarter: 2004Q4

REPORT INFORMATION
  Report Type: 
  Country: None (occurrence: None)
  Receive Date: 20041210
  Receipt Date: 20020107
  Transmission Date: 20050328
  Serious: Yes (Death)
  Sender: FDA-Public Use
  Company Number: US-ROCHE-304420

PATIENT
  Age: 15 Year
  Sex: Male
  Weight: 56.7 kg

DRUGS (15)
  1. ACCUTANE [Suspect]
     Route: 048
     Dates: start: 20010412, end: 20010418
  2. ACCUTANE [Suspect]
     Route: 048
     Dates: start: 20010418, end: 20010503
  3. ACCUTANE [Suspect]
     Route: 048
     Dates: start: 20010503, end: 20010518
  4. ACCUTANE [Suspect]
     Route: 048
     Dates: start: 20010518, end: 20010531
  5. ACCUTANE [Suspect]
     Route: 048
     Dates: start: 20010604, end: 20010608
  6. ACCUTANE [Suspect]
     Route: 048
     Dates: start: 20010608, end: 20010622
  7. ACCUTANE [Suspect]
     Route: 048
     Dates: start: 20010622, end: 20010723
  8. ACCUTANE [Suspect]
     Route: 048
     Dates: start: 20010723, end: 20010807
  9. ACCUTANE [Suspect]
     Route: 048
     Dates: start: 20010807, end: 20010915
  10. ACCUTANE [Suspect]
     Route: 048
     Dates: start: 20010915
  11. ACCUTANE [Suspect]
     Dosage: 30 MG GIVEN QAM AND 20 MG GIVEN QPM.
     Route: 048
     Dates: start: 20010615
  12. ACCUTANE [Suspect]
     Dosage: 40 MG GIVEN QAM AND 20 MG GIVEN QPM.
     Route: 048
     Dates: start: 20011025, end: 20020105
  13. PREDNISONE [Concomitant]
     Dosage: STARTED ON 29 MAR 2001 AT 20 MG/DAY FOR ONE WEEK, ON 07 APR DECREASED TO 10 MG/DAY, ON 26 APR TAPER+
     Dates: start: 20010329, end: 20010907
  14. DESIPRAMINE HCL [Concomitant]
     Dosage: INITIALLY 10 MG BID, INCREASED TO 10 MG TID, THEN 25 MG QAM OR AS DESIRED AND FINALLY 25MG QAM AND +
     Dates: start: 19950715, end: 19960615
  15. UNSPECIFIED MEDICATION [Concomitant]

REACTIONS (6)
  - ACCIDENT [None]
  - ACNE [None]
  - COMPLETED SUICIDE [None]
  - HEAD INJURY [None]
  - PSYCHOTIC DISORDER [None]
  - RESTLESSNESS [None]
